FAERS Safety Report 4409431-7 (Version None)
Quarter: 2004Q3

REPORT INFORMATION
  Report Type: 
  Country: None (occurrence: None)
  Receive Date: 20040722
  Receipt Date: 20040709
  Transmission Date: 20050211
  Serious: Yes (Hospitalization, Disabling)
  Sender: FDA-Public Use
  Company Number: US-JNJFOC-20040703191

PATIENT
  Age: 33 Year
  Sex: Male
  Weight: 71.6683 kg

DRUGS (24)
  1. INFLIXIMAB (INFLIXIMAB, RECOMBINANT) LYOPHILIZED POWDER [Suspect]
     Indication: CROHN'S DISEASE
     Dosage: 1 INFUSION PRIOR TO REGISTRATION IN TREAT ; 5 MG/KG , INTRAVENOUS
     Route: 042
     Dates: start: 19990813
  2. INFLIXIMAB (INFLIXIMAB, RECOMBINANT) LYOPHILIZED POWDER [Suspect]
     Indication: CROHN'S DISEASE
     Dosage: 1 INFUSION PRIOR TO REGISTRATION IN TREAT ; 5 MG/KG , INTRAVENOUS
     Route: 042
     Dates: start: 20000323
  3. INFLIXIMAB (INFLIXIMAB, RECOMBINANT) LYOPHILIZED POWDER [Suspect]
     Indication: CROHN'S DISEASE
     Dosage: 1 INFUSION PRIOR TO REGISTRATION IN TREAT ; 5 MG/KG , INTRAVENOUS
     Route: 042
     Dates: start: 20000516
  4. INFLIXIMAB (INFLIXIMAB, RECOMBINANT) LYOPHILIZED POWDER [Suspect]
     Indication: CROHN'S DISEASE
     Dosage: 1 INFUSION PRIOR TO REGISTRATION IN TREAT ; 5 MG/KG , INTRAVENOUS
     Route: 042
     Dates: start: 20000712
  5. INFLIXIMAB (INFLIXIMAB, RECOMBINANT) LYOPHILIZED POWDER [Suspect]
     Indication: CROHN'S DISEASE
     Dosage: 1 INFUSION PRIOR TO REGISTRATION IN TREAT ; 5 MG/KG , INTRAVENOUS
     Route: 042
     Dates: start: 20000908
  6. INFLIXIMAB (INFLIXIMAB, RECOMBINANT) LYOPHILIZED POWDER [Suspect]
     Indication: CROHN'S DISEASE
     Dosage: 1 INFUSION PRIOR TO REGISTRATION IN TREAT ; 5 MG/KG , INTRAVENOUS
     Route: 042
     Dates: start: 20001101
  7. INFLIXIMAB (INFLIXIMAB, RECOMBINANT) LYOPHILIZED POWDER [Suspect]
     Indication: CROHN'S DISEASE
     Dosage: 1 INFUSION PRIOR TO REGISTRATION IN TREAT ; 5 MG/KG , INTRAVENOUS
     Route: 042
     Dates: start: 20010102
  8. INFLIXIMAB (INFLIXIMAB, RECOMBINANT) LYOPHILIZED POWDER [Suspect]
     Indication: CROHN'S DISEASE
     Dosage: 1 INFUSION PRIOR TO REGISTRATION IN TREAT ; 5 MG/KG , INTRAVENOUS
     Route: 042
     Dates: start: 20010226
  9. INFLIXIMAB (INFLIXIMAB, RECOMBINANT) LYOPHILIZED POWDER [Suspect]
     Indication: CROHN'S DISEASE
     Dosage: 1 INFUSION PRIOR TO REGISTRATION IN TREAT ; 5 MG/KG , INTRAVENOUS
     Route: 042
     Dates: start: 20010426
  10. INFLIXIMAB (INFLIXIMAB, RECOMBINANT) LYOPHILIZED POWDER [Suspect]
     Indication: CROHN'S DISEASE
     Dosage: 1 INFUSION PRIOR TO REGISTRATION IN TREAT ; 5 MG/KG , INTRAVENOUS
     Route: 042
     Dates: start: 20010625
  11. INFLIXIMAB (INFLIXIMAB, RECOMBINANT) LYOPHILIZED POWDER [Suspect]
     Indication: CROHN'S DISEASE
     Dosage: 1 INFUSION PRIOR TO REGISTRATION IN TREAT ; 5 MG/KG , INTRAVENOUS
     Route: 042
     Dates: start: 20010824
  12. INFLIXIMAB (INFLIXIMAB, RECOMBINANT) LYOPHILIZED POWDER [Suspect]
     Indication: CROHN'S DISEASE
     Dosage: 1 INFUSION PRIOR TO REGISTRATION IN TREAT ; 5 MG/KG , INTRAVENOUS
     Route: 042
     Dates: start: 20011026
  13. INFLIXIMAB (INFLIXIMAB, RECOMBINANT) LYOPHILIZED POWDER [Suspect]
     Indication: CROHN'S DISEASE
     Dosage: 1 INFUSION PRIOR TO REGISTRATION IN TREAT ; 5 MG/KG , INTRAVENOUS
     Route: 042
     Dates: start: 20011220
  14. INFLIXIMAB (INFLIXIMAB, RECOMBINANT) LYOPHILIZED POWDER [Suspect]
     Indication: CROHN'S DISEASE
     Dosage: 1 INFUSION PRIOR TO REGISTRATION IN TREAT ; 5 MG/KG , INTRAVENOUS
     Route: 042
     Dates: start: 20020215
  15. INFLIXIMAB (INFLIXIMAB, RECOMBINANT) LYOPHILIZED POWDER [Suspect]
     Indication: CROHN'S DISEASE
     Dosage: 1 INFUSION PRIOR TO REGISTRATION IN TREAT ; 5 MG/KG , INTRAVENOUS
     Route: 042
     Dates: start: 20020426
  16. INFLIXIMAB (INFLIXIMAB, RECOMBINANT) LYOPHILIZED POWDER [Suspect]
     Indication: CROHN'S DISEASE
     Dosage: 1 INFUSION PRIOR TO REGISTRATION IN TREAT ; 5 MG/KG , INTRAVENOUS
     Route: 042
     Dates: start: 20020621
  17. INFLIXIMAB (INFLIXIMAB, RECOMBINANT) LYOPHILIZED POWDER [Suspect]
     Indication: CROHN'S DISEASE
     Dosage: 1 INFUSION PRIOR TO REGISTRATION IN TREAT ; 5 MG/KG , INTRAVENOUS
     Route: 042
     Dates: start: 20020821
  18. INFLIXIMAB (INFLIXIMAB, RECOMBINANT) LYOPHILIZED POWDER [Suspect]
     Indication: CROHN'S DISEASE
     Dosage: 1 INFUSION PRIOR TO REGISTRATION IN TREAT ; 5 MG/KG , INTRAVENOUS
     Route: 042
     Dates: start: 20021023
  19. INFLIXIMAB (INFLIXIMAB, RECOMBINANT) LYOPHILIZED POWDER [Suspect]
     Indication: CROHN'S DISEASE
     Dosage: 1 INFUSION PRIOR TO REGISTRATION IN TREAT ; 5 MG/KG , INTRAVENOUS
     Route: 042
     Dates: start: 20021227
  20. INFLIXIMAB (INFLIXIMAB, RECOMBINANT) LYOPHILIZED POWDER [Suspect]
     Indication: CROHN'S DISEASE
     Dosage: 1 INFUSION PRIOR TO REGISTRATION IN TREAT ; 5 MG/KG , INTRAVENOUS
     Route: 042
     Dates: start: 20030221
  21. INFLIXIMAB (INFLIXIMAB, RECOMBINANT) LYOPHILIZED POWDER [Suspect]
     Indication: CROHN'S DISEASE
     Dosage: 1 INFUSION PRIOR TO REGISTRATION IN TREAT ; 5 MG/KG , INTRAVENOUS
     Route: 042
     Dates: start: 20030402
  22. INFLIXIMAB (INFLIXIMAB, RECOMBINANT) LYOPHILIZED POWDER [Suspect]
     Indication: CROHN'S DISEASE
     Dosage: 1 INFUSION PRIOR TO REGISTRATION IN TREAT ; 5 MG/KG , INTRAVENOUS
     Route: 042
     Dates: start: 20030620
  23. NARCOTIC ANALGESICS (ANALGESICS) [Concomitant]
  24. TPN [Concomitant]

REACTIONS (1)
  - CATHETER SEPSIS [None]
